FAERS Safety Report 18865142 (Version 1)
Quarter: 2021Q1

REPORT INFORMATION
  Report Type: Spontaneous
  Country: US (occurrence: US)
  Receive Date: 20210208
  Receipt Date: 20210208
  Transmission Date: 20210420
  Serious: No
  Sender: FDA-Public Use
  Company Number: None

PATIENT
  Age: 55 Year
  Sex: Female
  Weight: 67.05 kg

DRUGS (5)
  1. MEDS TO CONTROL HIGH CHOLESTEROL [Concomitant]
  2. ASPIRIN. [Concomitant]
     Active Substance: ASPIRIN
  3. DYSPORT [Suspect]
     Active Substance: ABOBOTULINUMTOXINA
     Indication: SKIN WRINKLING
     Route: 030
     Dates: start: 20201220, end: 20201231
  4. VITAMIN D [Concomitant]
     Active Substance: VITAMIN D NOS
  5. MEDS TO CONTROL HIGH BLOOD PRESSURE [Concomitant]

REACTIONS (4)
  - Periorbital pain [None]
  - Blepharospasm [None]
  - Injection site pain [None]
  - Myalgia [None]

NARRATIVE: CASE EVENT DATE: 20210114
